FAERS Safety Report 16883377 (Version 3)
Quarter: 2019Q4

REPORT INFORMATION
  Report Type: Spontaneous
  Country: US (occurrence: US)
  Receive Date: 20191004
  Receipt Date: 20191211
  Transmission Date: 20200122
  Serious: No
  Sender: FDA-Public Use
  Company Number: US-JNJFOC-20191001596

PATIENT
  Age: 73 Year
  Sex: Female

DRUGS (3)
  1. DILTIAZEM XR [Concomitant]
     Active Substance: DILTIAZEM
     Indication: PRODUCT USED FOR UNKNOWN INDICATION
     Dosage: FROM 12 YEARS
     Route: 065
  2. MENS ROGAINE EXTRA STRENGTH [Suspect]
     Active Substance: MINOXIDIL
     Indication: PRODUCT USED FOR UNKNOWN INDICATION
     Route: 065
  3. JANUMET [Concomitant]
     Active Substance: METFORMIN HYDROCHLORIDE\SITAGLIPTIN PHOSPHATE
     Indication: DIABETES MELLITUS
     Dosage: FROM 7 YEARS
     Route: 065

REACTIONS (4)
  - Product use issue [Unknown]
  - Alopecia [Recovering/Resolving]
  - Intentional product misuse [Unknown]
  - Trichorrhexis [Recovering/Resolving]

NARRATIVE: CASE EVENT DATE: 20191020
